FAERS Safety Report 9197287 (Version 2)
Quarter: 2016Q2

REPORT INFORMATION
  Report Type: Report from Study
  Country: US (occurrence: US)
  Receive Date: 20130328
  Receipt Date: 20160509
  Transmission Date: 20160815
  Serious: Yes (Death)
  Sender: FDA-Public Use
  Company Number: US-ROCHE-1207794

PATIENT
  Sex: Male

DRUGS (5)
  1. AVASTIN [Suspect]
     Active Substance: BEVACIZUMAB
     Indication: COLON CANCER
     Route: 065
  2. IRINOTECAN [Concomitant]
     Active Substance: IRINOTECAN
     Route: 065
  3. DEXAMETHASONE SODIUM PHOSPHATE. [Concomitant]
     Active Substance: DEXAMETHASONE SODIUM PHOSPHATE
     Route: 065
  4. PALONOSETRON HCL [Concomitant]
     Active Substance: PALONOSETRON HYDROCHLORIDE
     Route: 065
  5. HEPARIN [Concomitant]
     Active Substance: HEPARIN SODIUM
     Route: 065

REACTIONS (2)
  - Disease progression [Unknown]
  - Death [Fatal]
